FAERS Safety Report 9247704 (Version 1)
Quarter: 2013Q2

REPORT INFORMATION
  Report Type: Spontaneous
  Country: BR (occurrence: BR)
  Receive Date: 20130423
  Receipt Date: 20130423
  Transmission Date: 20140414
  Serious: Yes (Other)
  Sender: FDA-Public Use
  Company Number: BR-ELI_LILLY_AND_COMPANY-BR201304004455

PATIENT
  Age: 63 Year
  Sex: Female
  Weight: 66 kg

DRUGS (17)
  1. CALCIO                             /00751501/ [Concomitant]
     Dosage: UNK, UNKNOWN
     Route: 065
  2. RIVOTRIL [Concomitant]
     Dosage: 0.6 MG, UNKNOWN
     Route: 065
  3. GLIFAGE [Concomitant]
     Indication: DIABETES MELLITUS
     Dosage: UNK, UNKNOWN
     Route: 065
  4. GLIMEPIRIDA [Concomitant]
     Indication: DIABETES MELLITUS
     Dosage: UNK, UNKNOWN
     Route: 065
  5. DIPROSPAN                          /00008504/ [Concomitant]
     Indication: OEDEMA PERIPHERAL
     Dosage: UNK, UNKNOWN
     Route: 065
  6. HUMALOG LISPRO [Suspect]
     Indication: DIABETES MELLITUS
     Dosage: UNK UNK, EACH MORNING
     Route: 058
     Dates: start: 2003
  7. HUMALOG LISPRO [Suspect]
     Dosage: 7 IU, OTHER
     Route: 058
     Dates: start: 2003
  8. HUMALOG LISPRO [Suspect]
     Dosage: UNK UNK, EACH EVENING
     Route: 058
     Dates: start: 2003
  9. HUMALOG LISPRO [Suspect]
     Dosage: UNK UNK, EACH MORNING
     Route: 058
     Dates: start: 20130413
  10. HUMALOG LISPRO [Suspect]
     Dosage: 7 IU, OTHER
     Route: 058
     Dates: start: 20130413
  11. HUMALOG LISPRO [Suspect]
     Dosage: UNK UNK, EACH EVENING
     Route: 058
     Dates: start: 20130413
  12. LANTUS [Concomitant]
     Dosage: UNK, UNKNOWN
     Route: 065
  13. PROGRAF [Concomitant]
     Indication: SWELLING
     Dosage: 6 MG, UNKNOWN
     Route: 065
  14. VALSARTAN [Concomitant]
     Indication: BLOOD PRESSURE
     Dosage: UNK UNK, UNKNOWN
     Route: 065
  15. CORTISONE [Concomitant]
     Dosage: 15 MG, UNK
     Route: 065
  16. LEXAPRO [Concomitant]
     Indication: ANXIETY
     Dosage: UNK, UNKNOWN
     Route: 065
  17. LIPLESS [Concomitant]
     Dosage: UNK, OTHER
     Route: 065

REACTIONS (5)
  - Renal failure [Unknown]
  - Blood glucose increased [Unknown]
  - Stress [Unknown]
  - Feeling abnormal [Unknown]
  - Expired drug administered [Unknown]
